FAERS Safety Report 18794723 (Version 1)
Quarter: 2021Q1

REPORT INFORMATION
  Report Type: Spontaneous
  Country: AT (occurrence: AT)
  Receive Date: 20210127
  Receipt Date: 20210127
  Transmission Date: 20210419
  Serious: Yes (Hospitalization)
  Sender: FDA-Public Use
  Company Number: AT-TEVA-2021-AT-1872346

PATIENT
  Sex: Male
  Weight: 100 kg

DRUGS (5)
  1. ARIPIPRAZOLE. [Suspect]
     Active Substance: ARIPIPRAZOLE
     Indication: DRUG ABUSE
     Dosage: 550 MG
     Route: 030
     Dates: start: 201806
  2. ARIPIPRAZOLE. [Suspect]
     Active Substance: ARIPIPRAZOLE
     Dosage: 400 MG
     Route: 030
     Dates: start: 201806
  3. ARIPIPRAZOLE. [Suspect]
     Active Substance: ARIPIPRAZOLE
     Indication: ALCOHOL ABUSE
     Dosage: 400 MG , THERAPY END DATE : ASKED BUT UNKNOWN
     Route: 030
     Dates: start: 20180329
  4. ARIPIPRAZOLE. [Suspect]
     Active Substance: ARIPIPRAZOLE
     Indication: PRODUCT USED FOR UNKNOWN INDICATION
     Dosage: 5 MG, THERAPY END DATE : ASKED BUT UNKNOWN
     Route: 048
     Dates: start: 201806
  5. DEPAKINE [Suspect]
     Active Substance: VALPROATE SODIUM
     Indication: ANAMNESTIC REACTION
     Dosage: 1500 MILLIGRAM DAILY; THERAPY START DATE  AND  THERAPY END DATE : ASKED BUT UNKNOWN
     Route: 065

REACTIONS (7)
  - Product use in unapproved indication [Unknown]
  - Overdose [Unknown]
  - Drug ineffective [Unknown]
  - Anamnestic reaction [Unknown]
  - Antipsychotic drug level decreased [Not Recovered/Not Resolved]
  - Dysphagia [Unknown]
  - Biliary tract disorder [Unknown]

NARRATIVE: CASE EVENT DATE: 20180409
